FAERS Safety Report 23474072 (Version 1)
Quarter: 2024Q1

REPORT INFORMATION
  Report Type: Other
  Country: ES (occurrence: ES)
  Receive Date: 20240204
  Receipt Date: 20240204
  Transmission Date: 20240409
  Serious: Yes (Hospitalization, Other)
  Sender: FDA-Public Use
  Company Number: ES-DEXPHARM-20240200

PATIENT
  Age: 41 Year
  Sex: Male

DRUGS (6)
  1. VALPROIC ACID [Suspect]
     Active Substance: VALPROIC ACID
     Dosage: 2,400 MG DAILY DURING 6 YEARS
  2. VALPROIC ACID [Suspect]
     Active Substance: VALPROIC ACID
     Dosage: 2,000 MG DAILY
  3. LACOSAMIDE [Interacting]
     Active Substance: LACOSAMIDE
     Dosage: 600 MG DAILY DURING 4 YEARS
  4. CLOBAZAM [Concomitant]
     Active Substance: CLOBAZAM
     Dosage: 30 MG DAILY DURING 2 YEARS
  5. FOLIC ACID [Concomitant]
     Active Substance: FOLIC ACID
     Dosage: 5 MG DAILY DURING 6 YEARS
  6. PANTOPRAZOLE [Interacting]
     Active Substance: PANTOPRAZOLE
     Dosage: 40 MG DAILY DURING 6 YEARS

REACTIONS (4)
  - Pancreatitis acute [Recovered/Resolved]
  - Type IV hypersensitivity reaction [Recovered/Resolved]
  - Reaction to excipient [Recovered/Resolved]
  - Drug interaction [Recovered/Resolved]
